FAERS Safety Report 8818782 (Version 2)
Quarter: 2012Q4

REPORT INFORMATION
  Report Type: 
  Country: US (occurrence: US)
  Receive Date: 20121001
  Receipt Date: 20121012
  Transmission Date: 20130627
  Serious: Yes (Life-Threatening, Hospitalization, Other)
  Sender: FDA-Public Use
  Company Number: US-ACTELION-A-US2012-68796

PATIENT
  Age: 47 Year
  Sex: Female

DRUGS (3)
  1. TRACLEER [Suspect]
     Indication: PULMONARY ARTERIAL HYPERTENSION
     Dosage: UNK
     Route: 048
  2. REMODULIN [Concomitant]
  3. FLOLAN [Concomitant]

REACTIONS (7)
  - Pulmonary arterial hypertension [Unknown]
  - Nausea [Recovering/Resolving]
  - Rash [Recovering/Resolving]
  - Dyspnoea [Unknown]
  - Oedema [Unknown]
  - Fluid retention [Unknown]
  - Fluid retention [Recovering/Resolving]
